FAERS Safety Report 23063202 (Version 2)
Quarter: 2023Q4

REPORT INFORMATION
  Report Type: Spontaneous
  Country: GB (occurrence: GB)
  Receive Date: 20231013
  Receipt Date: 20231018
  Transmission Date: 20240110
  Serious: Yes (Death, Other)
  Sender: FDA-Public Use
  Company Number: GB-ELI_LILLY_AND_COMPANY-GB202005010189

PATIENT
  Age: 59 Year
  Sex: Male
  Weight: 62 kg

DRUGS (101)
  1. OLANZAPINE [Suspect]
     Active Substance: OLANZAPINE
     Indication: Schizophrenia
     Dosage: 15 MG, UNKNOWN FREQUENCY
     Route: 048
     Dates: start: 20040217
  2. OLANZAPINE [Suspect]
     Active Substance: OLANZAPINE
     Indication: Schizophrenia
     Dosage: 15 MG, UNKNOWN FREQUENCY
     Route: 048
     Dates: start: 20060704
  3. OLANZAPINE [Suspect]
     Active Substance: OLANZAPINE
     Indication: Schizophrenia
     Dosage: 2.5 MG, UNKNOWN FREQUENCY
     Route: 048
     Dates: start: 20080823
  4. OLANZAPINE [Suspect]
     Active Substance: OLANZAPINE
     Indication: Schizophrenia
     Dosage: 10 MG, UNKNOWN FREQUENCY
     Route: 048
  5. OLANZAPINE [Suspect]
     Active Substance: OLANZAPINE
     Indication: Schizophrenia
     Dosage: 1 MG, UNKNOWN FREQUENCY
     Route: 048
  6. HALOPERIDOL [Suspect]
     Active Substance: HALOPERIDOL
     Indication: Schizophrenia
     Dosage: 10 MG, DAILY
     Route: 048
  7. HALOPERIDOL [Suspect]
     Active Substance: HALOPERIDOL
     Indication: Schizophrenia
     Dosage: 20 MG, DAILY
     Route: 048
  8. HALOPERIDOL [Suspect]
     Active Substance: HALOPERIDOL
     Indication: Schizophrenia
     Dosage: 5 MG, BID
     Route: 048
  9. HALOPERIDOL [Suspect]
     Active Substance: HALOPERIDOL
     Indication: Schizophrenia
     Dosage: 5 MG, DAILY
     Route: 048
  10. HALOPERIDOL [Suspect]
     Active Substance: HALOPERIDOL
     Indication: Schizophrenia
     Dosage: 40 MG, DAILY
     Route: 048
  11. HALOPERIDOL [Suspect]
     Active Substance: HALOPERIDOL
     Indication: Schizophrenia
     Dosage: 20 MG, BID
     Route: 048
  12. ZUCLOPENTHIXOL [Suspect]
     Active Substance: ZUCLOPENTHIXOL
     Indication: Product used for unknown indication
     Dosage: 400 MG, CYCLICAL, BIWEEKLY
     Route: 030
     Dates: start: 20030204, end: 20040217
  13. ZUCLOPENTHIXOL [Suspect]
     Active Substance: ZUCLOPENTHIXOL
     Indication: Product used for unknown indication
     Dosage: 400 MG, CYCLICAL, BIWEEKLY
     Route: 030
     Dates: start: 20030204, end: 20040217
  14. ZUCLOPENTHIXOL [Suspect]
     Active Substance: ZUCLOPENTHIXOL
     Indication: Product used for unknown indication
     Dosage: CONFLICTING INFORMATION: 400 MG WEEKLY OR BIWEEKLY
     Route: 030
     Dates: start: 20040217, end: 20040601
  15. ZUCLOPENTHIXOL [Suspect]
     Active Substance: ZUCLOPENTHIXOL
     Indication: Product used for unknown indication
     Dosage: CONFLICTING INFORMATION: 400 MG WEEKLY OR BIWEEKLY
     Route: 030
     Dates: start: 20040217, end: 20040601
  16. ZUCLOPENTHIXOL [Suspect]
     Active Substance: ZUCLOPENTHIXOL
     Indication: Product used for unknown indication
     Dosage: 400 MG, CYCLICAL, BIWEEKLY
     Route: 030
     Dates: start: 20040601, end: 20041018
  17. ZUCLOPENTHIXOL [Suspect]
     Active Substance: ZUCLOPENTHIXOL
     Indication: Product used for unknown indication
     Dosage: 400 MG, CYCLICAL, BIWEEKLY
     Route: 030
     Dates: start: 20040601, end: 20041018
  18. ZUCLOPENTHIXOL [Suspect]
     Active Substance: ZUCLOPENTHIXOL
     Indication: Product used for unknown indication
     Dosage: 400 MG, CYCLICAL, BIWEEKLY
     Route: 030
     Dates: start: 20041018, end: 20041018
  19. ZUCLOPENTHIXOL [Suspect]
     Active Substance: ZUCLOPENTHIXOL
     Indication: Product used for unknown indication
     Dosage: 400 MG, CYCLICAL, BIWEEKLY
     Route: 030
     Dates: start: 20041018, end: 20041018
  20. ZUCLOPENTHIXOL [Suspect]
     Active Substance: ZUCLOPENTHIXOL
     Indication: Product used for unknown indication
     Dosage: 300 MG, WEEKLY (1/W)
     Route: 030
     Dates: start: 20091018
  21. ZUCLOPENTHIXOL [Suspect]
     Active Substance: ZUCLOPENTHIXOL
     Indication: Product used for unknown indication
     Dosage: 300 MG, WEEKLY (1/W)
     Route: 030
     Dates: start: 20091018
  22. ZUCLOPENTHIXOL [Suspect]
     Active Substance: ZUCLOPENTHIXOL
     Indication: Product used for unknown indication
     Dosage: UNK
     Dates: start: 20200521
  23. ZUCLOPENTHIXOL [Suspect]
     Active Substance: ZUCLOPENTHIXOL
     Indication: Product used for unknown indication
     Dosage: UNK
     Dates: start: 20200521
  24. RISPERIDONE [Suspect]
     Active Substance: RISPERIDONE
     Indication: Schizophrenia
     Dosage: 8 MG, DAILY (4MG BID)
     Route: 048
  25. RISPERIDONE [Suspect]
     Active Substance: RISPERIDONE
     Indication: Schizophrenia
     Dosage: 6 MG, DAILY (3MG BID)
     Route: 048
  26. RISPERIDONE [Suspect]
     Active Substance: RISPERIDONE
     Indication: Schizophrenia
     Dosage: 12 MG, DAILY (6MG BID)
     Route: 048
  27. RISPERIDONE [Suspect]
     Active Substance: RISPERIDONE
     Indication: Schizophrenia
     Dosage: 1MG, DAILY
     Route: 048
  28. RISPERIDONE [Suspect]
     Active Substance: RISPERIDONE
     Indication: Schizophrenia
     Dosage: 4 MG, DAILY
     Route: 048
  29. RISPERIDONE [Suspect]
     Active Substance: RISPERIDONE
     Indication: Schizophrenia
     Dosage: 2 MG, DAILY
     Route: 048
  30. RISPERIDONE [Suspect]
     Active Substance: RISPERIDONE
     Indication: Schizophrenia
     Dosage: 1 MG, UNKNOWN
     Route: 048
  31. RISPERIDONE [Suspect]
     Active Substance: RISPERIDONE
     Indication: Schizophrenia
     Dosage: 6 MG, DAILY
     Route: 048
  32. RISPERIDONE [Suspect]
     Active Substance: RISPERIDONE
     Indication: Schizophrenia
     Dosage: 3 MG, DAILY
     Route: 048
  33. RISPERIDONE [Suspect]
     Active Substance: RISPERIDONE
     Indication: Schizophrenia
     Dosage: 4 MG, DAILY (2MG BID)
     Route: 048
  34. PERTUZUMAB [Suspect]
     Active Substance: PERTUZUMAB
     Indication: Breast cancer metastatic
     Dosage: 840 MG, EVERY THREE WEEKS
     Dates: start: 20150930
  35. PERTUZUMAB [Suspect]
     Active Substance: PERTUZUMAB
     Indication: Breast cancer metastatic
     Dosage: 420 MG, EVERY THREE WEEKS
     Route: 042
     Dates: start: 20151021
  36. PERTUZUMAB [Suspect]
     Active Substance: PERTUZUMAB
     Indication: Breast cancer metastatic
     Dosage: 840 MG, OTHER (EVERY THREE WEEKS)
     Dates: start: 20151021
  37. PERTUZUMAB [Suspect]
     Active Substance: PERTUZUMAB
     Indication: Breast cancer metastatic
     Dosage: 2 INTERNATIONAL UNIT, WEEKLY (1/W)
     Route: 042
  38. LITHIUM [Suspect]
     Active Substance: LITHIUM
     Indication: Product used for unknown indication
     Dosage: 1MG, UNKNOWN
     Route: 048
  39. LITHIUM [Suspect]
     Active Substance: LITHIUM
     Indication: Product used for unknown indication
     Dosage: 6 MG, DAILY
     Route: 048
  40. LITHIUM [Suspect]
     Active Substance: LITHIUM
     Indication: Product used for unknown indication
     Dosage: 2MG, UNKNOWN
     Route: 048
  41. CLOZAPINE [Suspect]
     Active Substance: CLOZAPINE
     Indication: Schizophrenia
     Dosage: 300MG, DAILY (CONFLICTING INFORMATION; ALSO REPORTED AS 245MG DAILY AND 600MG DAILY)
     Route: 048
     Dates: start: 20100823
  42. CLOZAPINE [Suspect]
     Active Substance: CLOZAPINE
     Indication: Schizophrenia
     Dosage: 600MG, UNKNOWN (CONFLICTING INFORMATION; ALSO REPORTED AS 245MG DAILY AND 300MG DAILY)
     Route: 048
     Dates: start: 20100823
  43. CLOZAPINE [Suspect]
     Active Substance: CLOZAPINE
     Indication: Schizophrenia
     Dosage: 245MG, DAILY (CONFLICTING INFORMATION; ALSO REPORTED AS 300MG DAILY AND 600MG DAILY)
     Route: 048
     Dates: start: 20100823
  44. CLOZAPINE [Suspect]
     Active Substance: CLOZAPINE
     Indication: Schizophrenia
     Dosage: 600 MG, DAILY
     Route: 048
     Dates: start: 2011
  45. CLOZAPINE [Suspect]
     Active Substance: CLOZAPINE
     Indication: Schizophrenia
     Dosage: 400 MG, DAILY
     Route: 048
     Dates: start: 2011
  46. CLOZAPINE [Suspect]
     Active Substance: CLOZAPINE
     Indication: Schizophrenia
     Dosage: 50 MG, DAILY
     Route: 048
     Dates: start: 20190809, end: 20190823
  47. CLOZAPINE [Suspect]
     Active Substance: CLOZAPINE
     Indication: Schizophrenia
     Dosage: 245 MG, DAILY
     Route: 048
     Dates: start: 20190820, end: 20190823
  48. CLOZAPINE [Suspect]
     Active Substance: CLOZAPINE
     Indication: Schizophrenia
     Dosage: 600 MG, DAILY
     Route: 048
     Dates: start: 20191207, end: 20191223
  49. CLOZAPINE [Suspect]
     Active Substance: CLOZAPINE
     Indication: Schizophrenia
     Dosage: 245 MG, UNKNOWN
     Route: 048
     Dates: start: 20191207
  50. CLOZAPINE [Suspect]
     Active Substance: CLOZAPINE
     Indication: Schizophrenia
     Dosage: 50 MG, DAILY
     Route: 048
     Dates: start: 20191209, end: 20191223
  51. CLOZAPINE [Suspect]
     Active Substance: CLOZAPINE
     Indication: Schizophrenia
     Dosage: 245 MG, DAILY
     Route: 048
     Dates: start: 20191209, end: 20191223
  52. CLOZAPINE [Suspect]
     Active Substance: CLOZAPINE
     Indication: Schizophrenia
     Dosage: 400 MG, DAILY
     Route: 048
     Dates: start: 20191209, end: 20191223
  53. CLOZAPINE [Suspect]
     Active Substance: CLOZAPINE
     Indication: Schizophrenia
     Dosage: 600MG, DAILY
     Route: 048
     Dates: start: 20191223, end: 20191223
  54. CLOZAPINE [Suspect]
     Active Substance: CLOZAPINE
     Indication: Schizophrenia
     Dosage: 100 MG, DAILY
     Route: 048
     Dates: start: 20191223, end: 20191223
  55. CLOZAPINE [Suspect]
     Active Substance: CLOZAPINE
     Indication: Schizophrenia
     Dosage: 400 MG, DAILY
     Route: 048
     Dates: start: 20191223, end: 20191223
  56. CLOZAPINE [Suspect]
     Active Substance: CLOZAPINE
     Indication: Schizophrenia
     Dosage: 600MG, UNKNOWN
     Route: 048
     Dates: start: 20200207
  57. CLOZAPINE [Suspect]
     Active Substance: CLOZAPINE
     Indication: Schizophrenia
     Dosage: 800 MG, DAILY (400MG BID)
     Route: 048
     Dates: start: 20200207
  58. CLOZAPINE [Suspect]
     Active Substance: CLOZAPINE
     Indication: Schizophrenia
     Dosage: 275 MG, DAILY
     Route: 048
     Dates: start: 20200521, end: 20200521
  59. CLOZAPINE [Suspect]
     Active Substance: CLOZAPINE
     Indication: Schizophrenia
     Dosage: 600MG, DAILY
     Route: 048
     Dates: start: 20200521, end: 2021
  60. CLOZAPINE [Suspect]
     Active Substance: CLOZAPINE
     Indication: Schizophrenia
     Dosage: 245 MG, DAILY
     Route: 048
     Dates: start: 20200521
  61. CLOZAPINE [Suspect]
     Active Substance: CLOZAPINE
     Indication: Schizophrenia
     Dosage: 50 MG, DAILY
     Route: 048
     Dates: start: 20200521
  62. CLOZAPINE [Suspect]
     Active Substance: CLOZAPINE
     Indication: Schizophrenia
     Dosage: 600MG, UNKNOWN
     Route: 048
     Dates: start: 20201207
  63. CLOZAPINE [Suspect]
     Active Substance: CLOZAPINE
     Indication: Schizophrenia
     Dosage: 600MG, UNKNOWN
     Route: 048
     Dates: start: 20201209, end: 20201223
  64. CLOZAPINE [Suspect]
     Active Substance: CLOZAPINE
     Indication: Schizophrenia
     Dosage: 600MG, DAILY
     Route: 048
     Dates: start: 20201223, end: 20201223
  65. TRASTUZUMAB [Suspect]
     Active Substance: TRASTUZUMAB
     Indication: Breast cancer metastatic
     Dosage: 1827 MG, WEEKLY (1/W); (CONFLICTING INFORMATION; ALSO REPORTED AS 609MG THRICE WEEKLY AND 609MG E...
     Route: 042
     Dates: start: 20150930
  66. TRASTUZUMAB [Suspect]
     Active Substance: TRASTUZUMAB
     Indication: Breast cancer metastatic
     Dosage: 609 MG, OTHER (EVERY 2 WEEKS); (CONFLICTING INFORMATION; ALSO REPORTED AS 609MG THRICE WEEKLY AND...
     Route: 042
     Dates: start: 20150930
  67. TRASTUZUMAB [Suspect]
     Active Substance: TRASTUZUMAB
     Indication: Breast cancer metastatic
     Dosage: 609 MG, OTHER (EVERY 3 WEEKS); (CONFLICTING INFORMATION; ALSO REPORTED AS 609MG EVERY TWO WEEKS A...
     Dates: start: 20150930
  68. TRASTUZUMAB [Suspect]
     Active Substance: TRASTUZUMAB
     Indication: Breast cancer metastatic
     Dosage: 1218 MG, WEEKLY (1/W)
     Route: 042
     Dates: start: 20150930
  69. TRASTUZUMAB [Suspect]
     Active Substance: TRASTUZUMAB
     Indication: Breast cancer metastatic
     Dosage: 1218 MG, UNKNOWN
     Dates: start: 20151130
  70. TRASTUZUMAB [Suspect]
     Active Substance: TRASTUZUMAB
     Indication: Breast cancer metastatic
     Dosage: 840 MG, CYCLICAL (EACH THREE WEEKS)
  71. TRASTUZUMAB [Suspect]
     Active Substance: TRASTUZUMAB
     Indication: Breast cancer metastatic
     Dosage: 420 MG, CYCLICAL (EACH THREE WEEKS)
  72. ARIPIPRAZOLE [Suspect]
     Active Substance: ARIPIPRAZOLE
     Indication: Schizophrenia
     Dosage: 5 MG, UNKNOWN
     Route: 048
  73. ARIPIPRAZOLE [Suspect]
     Active Substance: ARIPIPRAZOLE
     Indication: Disease progression
     Dosage: 5 MG, UNKNOWN
     Route: 048
  74. PACLITAXEL [Suspect]
     Active Substance: PACLITAXEL
     Indication: Breast cancer metastatic
     Dosage: 120 MG, WEEKLY (1/W)
     Route: 042
     Dates: start: 20151111, end: 20151223
  75. LORAZEPAM [Suspect]
     Active Substance: LORAZEPAM
     Indication: Schizophrenia
     Dosage: 1 MG, UNKNOWN
     Route: 048
  76. CHLORPROMAZINE [Suspect]
     Active Substance: CHLORPROMAZINE
     Indication: Schizophrenia
     Dosage: 75 MG, UNKNOWN
     Route: 048
  77. DOCETAXEL [Suspect]
     Active Substance: DOCETAXEL
     Indication: Pyrexia
     Dosage: 110MG, CYCLICAL (EVERY 3 WEEKS)?DAILY DOSE: CYCLICAL
     Dates: start: 20150930, end: 20151021
  78. DOCETAXEL [Suspect]
     Active Substance: DOCETAXEL
     Indication: Breast cancer metastatic
     Dosage: 110MG, CYCLICAL (EVERY 3 WEEKS)?DAILY DOSE: CYCLICAL
     Dates: start: 20150930, end: 20151021
  79. DOCETAXEL [Suspect]
     Active Substance: DOCETAXEL
     Indication: Pyrexia
     Dosage: 220 MG, UNKNOWN
     Dates: start: 20151222
  80. DOCETAXEL [Suspect]
     Active Substance: DOCETAXEL
     Indication: Breast cancer metastatic
     Dosage: 220 MG, UNKNOWN
     Dates: start: 20151222
  81. DENOSUMAB [Suspect]
     Active Substance: DENOSUMAB
     Indication: Metastases to bone
     Dosage: 120 MG, CYCLICAL (EVERY 9 WEEKS)
     Route: 058
     Dates: start: 20150930
  82. DENOSUMAB [Suspect]
     Active Substance: DENOSUMAB
     Indication: Gastrooesophageal reflux disease
     Dosage: 120 MG, CYCLICAL (EVERY 9 WEEKS)
     Route: 058
     Dates: start: 20150930
  83. GENTAMICIN [Concomitant]
     Active Substance: GENTAMICIN
     Indication: Febrile neutropenia
     Dosage: 120 MG, DAILY
     Route: 042
     Dates: start: 20151121
  84. PIPERACILLIN SODIUM\TAZOBACTAM SODIUM [Concomitant]
     Active Substance: PIPERACILLIN SODIUM\TAZOBACTAM SODIUM
     Indication: Febrile neutropenia
     Dosage: UNK UNK, UNKNOWN
     Route: 048
     Dates: start: 20151121
  85. PREGABALIN [Concomitant]
     Active Substance: PREGABALIN
     Indication: Product used for unknown indication
     Dosage: 75 MG, BID
     Route: 048
     Dates: start: 201509
  86. PREGABALIN [Concomitant]
     Active Substance: PREGABALIN
     Indication: Product used for unknown indication
     Dosage: 150 MG, BID
     Route: 048
     Dates: start: 201509
  87. RANITIDINE [Concomitant]
     Active Substance: RANITIDINE
     Indication: Gastrooesophageal reflux disease
     Dosage: 50 MG, WEEKLY (1/W)
     Route: 058
     Dates: start: 20151111
  88. RANITIDINE [Concomitant]
     Active Substance: RANITIDINE
     Indication: Gastrooesophageal reflux disease
     Dosage: 75 MG, WEEKLY (1/W)
     Dates: start: 20151111
  89. RANITIDINE [Concomitant]
     Active Substance: RANITIDINE
     Indication: Gastrooesophageal reflux disease
     Dosage: 150 MG, WEEKLY (1/W)
  90. AMOXICILLIN\CLAVULANATE POTASSIUM [Concomitant]
     Active Substance: AMOXICILLIN\CLAVULANATE POTASSIUM
     Indication: Febrile neutropenia
     Dosage: 625 MG, QID
     Route: 048
     Dates: start: 20151122, end: 20151125
  91. ACETAMINOPHEN [Concomitant]
     Active Substance: ACETAMINOPHEN
     Indication: Pain
     Dosage: 500 MG, UNKNOWN
     Route: 048
     Dates: start: 20150127
  92. ACETAMINOPHEN [Concomitant]
     Active Substance: ACETAMINOPHEN
     Indication: Pain
     Dosage: 15 MG, DAILY
  93. CHOLECALCIFEROL [Concomitant]
     Active Substance: CHOLECALCIFEROL
     Indication: Product used for unknown indication
     Dosage: 2 DOSAGE FORM, DAILY
     Route: 048
  94. MORPHINE [Concomitant]
     Active Substance: MORPHINE
     Indication: Pain
     Dosage: 30 MG, BID
     Route: 048
     Dates: start: 201509
  95. MORPHINE [Concomitant]
     Active Substance: MORPHINE
     Indication: Pain
     Dosage: 10 MG, UNKNOWN
     Dates: start: 201509
  96. MORPHINE [Concomitant]
     Active Substance: MORPHINE
     Indication: Pain
     Dosage: 15 MG, DAILY
     Dates: start: 201510
  97. MIRTAZAPINE [Concomitant]
     Active Substance: MIRTAZAPINE
     Indication: Product used for unknown indication
     Dosage: 15 MG, DAILY
     Route: 048
     Dates: start: 201510
  98. CHLORPHENIRAMINE MALEATE [Concomitant]
     Active Substance: CHLORPHENIRAMINE MALEATE
     Indication: Product used for unknown indication
     Dosage: 10 MG, WEEKLY (1/W)
     Route: 058
     Dates: start: 20151111
  99. LEVOFLOXACIN [Concomitant]
     Active Substance: LEVOFLOXACIN
     Indication: Febrile neutropenia
     Dosage: 500 MG, DAILY
     Route: 048
     Dates: start: 20151125
  100. DULOXETINE [Concomitant]
     Active Substance: DULOXETINE
     Indication: Product used for unknown indication
     Dosage: UNK UNK, UNKNOWN
  101. CALCIUM CARBONATE\CHOLECALCIFEROL [Concomitant]
     Active Substance: CALCIUM CARBONATE\CHOLECALCIFEROL
     Indication: Product used for unknown indication
     Dosage: 2 DOSAGE FORM, DAILY
     Route: 048
     Dates: start: 20091018

REACTIONS (32)
  - Malignant neoplasm progression [Fatal]
  - Extrapyramidal disorder [Fatal]
  - Lymphocyte count abnormal [Fatal]
  - COVID-19 [Fatal]
  - Seizure [Fatal]
  - Fatigue [Fatal]
  - Fatigue [Fatal]
  - Fatigue [Fatal]
  - Schizophrenia [Fatal]
  - Delusion of grandeur [Fatal]
  - Hallucination, auditory [Fatal]
  - Psychotic disorder [Fatal]
  - Affective disorder [Fatal]
  - Lymphocyte count decreased [Fatal]
  - Neuropathy peripheral [Fatal]
  - Neutrophil count increased [Fatal]
  - Cellulitis [Fatal]
  - Dyspepsia [Fatal]
  - Nausea [Fatal]
  - Neutropenia [Fatal]
  - Leukopenia [Fatal]
  - Platelet count decreased [Fatal]
  - Alopecia [Fatal]
  - Incorrect dose administered [Fatal]
  - Diarrhoea [Fatal]
  - Mucosal inflammation [Fatal]
  - Overdose [Fatal]
  - Nasal discomfort [Fatal]
  - Thrombocytopenia [Recovering/Resolving]
  - Leukocytosis [Unknown]
  - Neutrophil count decreased [Fatal]
  - Intentional product misuse [Fatal]

NARRATIVE: CASE EVENT DATE: 20151101
